FAERS Safety Report 9252281 (Version 1)
Quarter: 2013Q1

REPORT INFORMATION
  Report Type: Spontaneous
  Country: US (occurrence: None)
  Receive Date: 20130305
  Receipt Date: 20130305
  Transmission Date: 20140127
  Serious: Yes (Other)
  Sender: FDA-Public Use
  Company Number: 163-21880-12091113

PATIENT
  Age: 55 Year
  Sex: Female

DRUGS (5)
  1. REVLIMID [Suspect]
     Indication: PLASMA CELL MYELOMA
     Dosage: 14 IN 21 D
     Route: 048
     Dates: start: 20120629
  2. CALCITRIOL [Concomitant]
  3. AFRIN [Concomitant]
  4. TUMS (CALCIUM CARBONATE) [Concomitant]
  5. CLARITIN (LORATADINE) [Concomitant]

REACTIONS (1)
  - Diarrhoea [None]
